FAERS Safety Report 5098095-8 (Version None)
Quarter: 2006Q3

REPORT INFORMATION
  Report Type: 
  Country: None (occurrence: None)
  Receive Date: 20060906
  Receipt Date: 20060410
  Transmission Date: 20061208
  Serious: No
  Sender: FDA-Public Use
  Company Number: US-GLAXOSMITHKLINE-A0601181A

PATIENT
  Age: 38 Year
  Sex: Male
  Weight: 80.5 kg

DRUGS (3)
  1. REQUIP [Suspect]
     Indication: RESTLESS LEGS SYNDROME
     Dosage: 1MG UNKNOWN
     Route: 048
     Dates: start: 20051110, end: 20051206
  2. AMBIEN [Concomitant]
     Dosage: 5MG AS REQUIRED
  3. CPAP [Concomitant]

REACTIONS (1)
  - ERECTILE DYSFUNCTION [None]
